FAERS Safety Report 4934871-7 (Version None)
Quarter: 2006Q1

REPORT INFORMATION
  Report Type: 
  Country: None (occurrence: None)
  Receive Date: 20060302
  Receipt Date: 20060210
  Transmission Date: 20060701
  Serious: Yes (Hospitalization, Other)
  Sender: FDA-Public Use
  Company Number: JP200602000311

PATIENT
  Sex: Female

DRUGS (5)
  1. HUMACART 30% REGULAR, 70% NPH (HUMAN INSULIN (RDNA ORIGIN) 30% REGULAR [Suspect]
     Indication: DIABETES MELLITUS
     Dosage: SEE IMAGE
     Dates: start: 20050101, end: 20050101
  2. HUMACART 30% REGULAR, 70% NPH (HUMAN INSULIN (RDNA ORIGIN) 30% REGULAR [Suspect]
     Indication: DIABETES MELLITUS
     Dosage: SEE IMAGE
     Dates: end: 20051125
  3. HUMACART 30% REGULAR, 70% NPH (HUMAN INSULIN (RDNA ORIGIN) 30% REGULAR [Suspect]
     Indication: DIABETES MELLITUS
     Dosage: SEE IMAGE
     Dates: start: 20050101, end: 20060104
  4. HUMALOG [Suspect]
     Indication: DIABETES MELLITUS
     Dosage: SEE IMAGE
     Dates: start: 20060105
  5. HUMALOG [Suspect]
     Indication: DIABETES MELLITUS
     Dates: start: 20060105

REACTIONS (4)
  - ANTI-INSULIN ANTIBODY POSITIVE [None]
  - COOMBS TEST POSITIVE [None]
  - HYPOGLYCAEMIA [None]
  - LOSS OF CONSCIOUSNESS [None]
